FAERS Safety Report 17105621 (Version 2)
Quarter: 2019Q4

REPORT INFORMATION
  Report Type: Spontaneous
  Country: FR (occurrence: FR)
  Receive Date: 20191203
  Receipt Date: 20191216
  Transmission Date: 20200122
  Serious: Yes (Death, Hospitalization)
  Sender: FDA-Public Use
  Company Number: FR-TEVA-2019-FR-1144641

PATIENT
  Age: 83 Year
  Sex: Female

DRUGS (11)
  1. PREDNISOLONE. [Suspect]
     Active Substance: PREDNISOLONE
     Indication: DYSPNOEA
     Dosage: 1 GM PER DAY
     Route: 048
     Dates: start: 20190706, end: 20190708
  2. AMLODIPINE [Concomitant]
     Active Substance: AMLODIPINE BESYLATE
     Route: 048
     Dates: end: 20190723
  3. POTASSIUM [Concomitant]
     Active Substance: POTASSIUM
     Route: 048
     Dates: end: 20190723
  4. LANSOPRAZOLE. [Suspect]
     Active Substance: LANSOPRAZOLE
     Route: 048
     Dates: end: 20190723
  5. BISOPROLOL (FUMARATE ACIDE DE) [Concomitant]
     Active Substance: BISOPROLOL FUMARATE
     Route: 048
     Dates: end: 20190723
  6. ACIDE ALENDRONIQUE [Concomitant]
     Active Substance: ALENDRONIC ACID
     Route: 048
     Dates: end: 20190723
  7. PREDNISOLONE. [Suspect]
     Active Substance: PREDNISOLONE
     Indication: INTERSTITIAL LUNG DISEASE
     Dosage: 40 MG PER DAY
     Route: 048
     Dates: start: 201808, end: 20190723
  8. CALCIUM (ACETATE DE) [Concomitant]
     Active Substance: CALCIUM ACETATE
     Route: 048
     Dates: end: 20190723
  9. EZETIMIBE. [Concomitant]
     Active Substance: EZETIMIBE
     Route: 048
     Dates: end: 20190723
  10. ASPIRINE [Concomitant]
     Active Substance: ASPIRIN
     Route: 048
     Dates: end: 20190723
  11. ELIQUIS [Concomitant]
     Active Substance: APIXABAN
     Indication: THROMBOSIS PROPHYLAXIS
     Route: 048
     Dates: start: 2018, end: 20190619

REACTIONS (2)
  - Opportunistic infection [Not Recovered/Not Resolved]
  - Bronchopulmonary aspergillosis [Not Recovered/Not Resolved]

NARRATIVE: CASE EVENT DATE: 20190709
